FAERS Safety Report 5874494-9 (Version None)
Quarter: 2008Q3

REPORT INFORMATION
  Report Type: 
  Country: None (occurrence: None)
  Receive Date: 20080909
  Receipt Date: 20080828
  Transmission Date: 20090109
  Serious: Yes (Hospitalization, Other)
  Sender: FDA-Public Use
  Company Number: PHBS2008HR05564

PATIENT
  Age: 21 Year
  Sex: Male

DRUGS (1)
  1. CARBAMAZEPINE [Suspect]
     Indication: GRAND MAL CONVULSION
     Dosage: UNK
     Dates: start: 20020901

REACTIONS (10)
  - CSF CELL COUNT INCREASED [None]
  - ENCEPHALITIS [None]
  - EXTENSOR PLANTAR RESPONSE [None]
  - EYE PAIN [None]
  - HEADACHE [None]
  - NYSTAGMUS [None]
  - PARAESTHESIA [None]
  - PROTEIN TOTAL INCREASED [None]
  - VISUAL ACUITY REDUCED [None]
  - VOMITING [None]
